FAERS Safety Report 9470953 (Version 2)
Quarter: 2013Q3

REPORT INFORMATION
  Report Type: Spontaneous
  Country: US (occurrence: US)
  Receive Date: 20130822
  Receipt Date: 20130909
  Transmission Date: 20140515
  Serious: Yes (Death)
  Sender: FDA-Public Use
  Company Number: None

PATIENT
  Age: 31 Year
  Sex: Male

DRUGS (7)
  1. ZYPREXA RELPREVV [Suspect]
     Indication: SCHIZOAFFECTIVE DISORDER
     Dosage: 405 MG, UNKNOWN
     Route: 030
     Dates: start: 20130522, end: 20130522
  2. TEGRETOL [Concomitant]
     Dosage: 200 MG, BID
     Route: 048
  3. SEROQUEL [Concomitant]
     Dosage: 200 MG, EACH EVENING
     Route: 065
  4. PROZAC [Concomitant]
     Dosage: 20 MG, EACH MORNING
     Route: 065
  5. LITHIUM [Concomitant]
     Dosage: 300 MG, BID
     Route: 065
  6. PROLIXIN                           /00000602/ [Concomitant]
     Dosage: 2 MG, UNKNOWN
  7. VISTARIL                           /00058402/ [Concomitant]

REACTIONS (2)
  - Myocardial infarction [Fatal]
  - Alcohol use [None]
